FAERS Safety Report 9345500 (Version 2)
Quarter: 2013Q2

REPORT INFORMATION
  Report Type: Spontaneous
  Country: DE (occurrence: DE)
  Receive Date: 20130613
  Receipt Date: 20130624
  Transmission Date: 20140414
  Serious: Yes (Hospitalization)
  Sender: FDA-Public Use
  Company Number: DE-JNJFOC-20130313586

PATIENT
  Age: 80 Year
  Sex: Male
  Weight: 81 kg

DRUGS (8)
  1. XARELTO [Suspect]
     Indication: ATRIAL FIBRILLATION
     Route: 048
     Dates: start: 20120329
  2. XARELTO [Suspect]
     Indication: CEREBROVASCULAR ACCIDENT PROPHYLAXIS
     Route: 048
     Dates: start: 20120329
  3. ACETYLSALICYLIC ACID [Concomitant]
     Route: 065
  4. DELIX [Concomitant]
     Route: 065
  5. DELIX [Concomitant]
     Route: 065
  6. GLIBENCLAMIDE [Concomitant]
     Route: 065
  7. XIPAMID [Concomitant]
     Route: 065
  8. PANTOZOL [Concomitant]
     Route: 065

REACTIONS (2)
  - Epistaxis [Recovered/Resolved]
  - Hypertensive crisis [Recovered/Resolved]
